FAERS Safety Report 6994624-5 (Version None)
Quarter: 2010Q3

REPORT INFORMATION
  Report Type: 
  Country: None (occurrence: None)
  Receive Date: 20100915
  Receipt Date: 20100915
  Transmission Date: 20110219
  Serious: No
  Sender: FDA-Public Use
  Company Number: None

PATIENT
  Age: 59 Year
  Sex: Male

DRUGS (1)
  1. ETODOLAC [Suspect]
     Dosage: 1 TAB BID PO
     Route: 048
     Dates: start: 20100713, end: 20100721

REACTIONS (1)
  - RASH [None]
